FAERS Safety Report 12721108 (Version 3)
Quarter: 2016Q3

REPORT INFORMATION
  Report Type: Spontaneous
  Country: RU (occurrence: RU)
  Receive Date: 20160907
  Receipt Date: 20160916
  Transmission Date: 20161109
  Serious: Yes (Other)
  Sender: FDA-Public Use
  Company Number: RU-TEVA-690547ISR

PATIENT
  Sex: Female

DRUGS (1)
  1. MODELL TREND [Suspect]
     Active Substance: DROSPIRENONE\ETHINYL ESTRADIOL
     Dosage: 1 DOSAGE FORMS DAILY;

REACTIONS (1)
  - Bronchospasm [Recovered/Resolved]
